FAERS Safety Report 4759259-3 (Version None)
Quarter: 2005Q3

REPORT INFORMATION
  Report Type: 
  Country: None (occurrence: None)
  Receive Date: 20050831
  Receipt Date: 20050815
  Transmission Date: 20060218
  Serious: Yes (Death, Hospitalization)
  Sender: FDA-Public Use
  Company Number: 2005BH000040

PATIENT
  Age: 80 Year
  Sex: Female

DRUGS (1)
  1. EXTRANEAL [Suspect]
     Indication: AZOTAEMIA
     Dosage: 2 L; EVERY DAY; IP
     Route: 033
     Dates: start: 20010101, end: 20020301

REACTIONS (17)
  - ABDOMINAL PAIN [None]
  - COMPUTERISED TOMOGRAM ABNORMAL [None]
  - DIVERTICULUM [None]
  - DRUG INEFFECTIVE [None]
  - DRUG PHYSIOLOGIC INCOMPATIBILITY [None]
  - GENERAL PHYSICAL HEALTH DETERIORATION [None]
  - INFLAMMATION [None]
  - INTESTINAL DILATATION [None]
  - PERITONEAL ADHESIONS [None]
  - PERITONITIS [None]
  - PERITONITIS BACTERIAL [None]
  - PERITONITIS SCLEROSING [None]
  - POST PROCEDURAL COMPLICATION [None]
  - PROCEDURAL COMPLICATION [None]
  - STAPHYLOCOCCAL INFECTION [None]
  - SUBILEUS [None]
  - WEIGHT DECREASED [None]
